FAERS Safety Report 8582793-5 (Version None)
Quarter: 2012Q3

REPORT INFORMATION
  Report Type: 
  Country: None (occurrence: None)
  Receive Date: 20120809
  Receipt Date: 20120731
  Transmission Date: 20120928
  Serious: Yes (Hospitalization, Other)
  Sender: FDA-Public Use
  Company Number: US-BAXTER-2012BAX012563

PATIENT
  Sex: Female

DRUGS (3)
  1. DIANEAL [Suspect]
     Indication: PERITONEAL DIALYSIS
     Route: 033
  2. NEURONTIN [Suspect]
     Indication: DIABETIC NEUROPATHY
     Route: 048
  3. NEURONTIN [Suspect]

REACTIONS (3)
  - UNRESPONSIVE TO STIMULI [None]
  - MEDICATION ERROR [None]
  - CONVULSION [None]
